FAERS Safety Report 10183404 (Version 2)
Quarter: 2014Q2

REPORT INFORMATION
  Report Type: Spontaneous
  Country: FR (occurrence: FR)
  Receive Date: 20140520
  Receipt Date: 20140529
  Transmission Date: 20141212
  Serious: Yes (Hospitalization)
  Sender: FDA-Public Use
  Company Number: FR-ELI_LILLY_AND_COMPANY-FR201405001027

PATIENT
  Age: 66 Year
  Sex: Female

DRUGS (16)
  1. ZYPREXA [Suspect]
     Indication: DEPRESSION
     Dosage: 7.5 MG, QD
     Route: 048
     Dates: start: 201403, end: 20140404
  2. DEROXAT [Suspect]
     Indication: DEPRESSION
     Dosage: 20 MG, BID
     Route: 048
     Dates: start: 201403, end: 20140404
  3. TRANXENE [Suspect]
     Indication: DEPRESSION
     Dosage: 80 MG, QD
     Route: 048
  4. TRANXENE [Suspect]
     Dosage: 100 MG, QD
     Route: 048
     Dates: start: 201403, end: 20140404
  5. TERCIAN                            /00759301/ [Suspect]
     Indication: DEPRESSION
     Dosage: 100 MG, QD
     Route: 048
     Dates: start: 201403, end: 20140404
  6. STILNOX [Suspect]
     Indication: DEPRESSION
     Dosage: 10 MG, QD
     Route: 048
     Dates: start: 201309, end: 20140404
  7. TRAMADOL [Suspect]
     Indication: PAIN
     Dosage: 400 MG, BID
     Route: 048
     Dates: start: 201403, end: 20140404
  8. RISPERDAL [Suspect]
     Indication: DEPRESSION
     Dosage: 4 MG, QD
     Route: 048
     Dates: start: 201403, end: 20140404
  9. BETASERC                           /00141801/ [Concomitant]
     Dosage: UNK, BID
  10. TAREG [Concomitant]
     Dosage: 160 DF, QD
  11. TAHOR [Concomitant]
     Dosage: 80 DF, QD
  12. CHONDROSULF [Concomitant]
     Dosage: 400 DF, QD
  13. KALEORID [Concomitant]
     Dosage: 100 DF, TID
  14. EFFERALGAN                         /00020001/ [Concomitant]
     Dosage: 4 G, QD
  15. IMUREL [Concomitant]
     Dosage: 50 DF, QD
  16. KARDEGIC [Concomitant]
     Dosage: 160 MG, QD

REACTIONS (6)
  - Respiratory acidosis [Recovered/Resolved]
  - Hypoventilation [Recovered/Resolved]
  - Urinary tract infection [Unknown]
  - Drug administration error [Unknown]
  - Hypernatraemia [Recovering/Resolving]
  - White blood cell count increased [Recovering/Resolving]
